FAERS Safety Report 13857532 (Version 1)
Quarter: 2017Q3

REPORT INFORMATION
  Report Type: Spontaneous
  Country: BR (occurrence: BR)
  Receive Date: 20170811
  Receipt Date: 20170811
  Transmission Date: 20171127
  Serious: Yes (Other)
  Sender: FDA-Public Use
  Company Number: PHHY2017BR115896

PATIENT
  Sex: Female

DRUGS (1)
  1. RISPERIDONE. [Suspect]
     Active Substance: RISPERIDONE
     Indication: DEPRESSION
     Dosage: HALF A TABLET A DAY
     Route: 048

REACTIONS (5)
  - Incorrect dose administered [Unknown]
  - Tremor [Recovering/Resolving]
  - Suicidal ideation [Unknown]
  - Feeling abnormal [Unknown]
  - Off label use [Unknown]
